FAERS Safety Report 8223575-3 (Version None)
Quarter: 2012Q1

REPORT INFORMATION
  Report Type: 
  Country: None (occurrence: None)
  Receive Date: 20120321
  Receipt Date: 20120313
  Transmission Date: 20120608
  Serious: No
  Sender: FDA-Public Use
  Company Number: US-PFIZER INC-2012068152

PATIENT

DRUGS (12)
  1. ELAVIL [Concomitant]
     Dosage: 50 MG, 1X/DAY NIGHTLY
     Route: 048
  2. DULCOLAX [Concomitant]
     Indication: CONSTIPATION
     Dosage: 5 MG, AS NEEDED (DAILY)
     Route: 048
  3. VIBRAMYCIN [Concomitant]
     Dosage: 100 MG, 2X/DAY
     Route: 048
  4. POLY-IRON [Concomitant]
     Dosage: 150 MG, 2X/DAY
     Route: 048
  5. ZOLOFT [Suspect]
     Dosage: 50 MG, 1X/DAY AT BEDTIME
     Route: 048
  6. VASOTEC [Concomitant]
     Dosage: 10 MG, DAILY
     Route: 048
  7. CALCITRATE [Concomitant]
     Dosage: 200 MG (950 MG): TAKE 1 DAILY
     Route: 048
  8. CALCIUM CARBONATE/COLECALCIFEROL [Concomitant]
     Dosage: 180-5,000 MG-UNIT: TAKE 1 DAILY
     Route: 048
  9. MAGNESIUM [Concomitant]
     Dosage: 30 MG, 1X/DAY
     Route: 048
  10. MULTIPLE VITAMIN [Concomitant]
     Dosage: 1 DF, 1X/DAY
     Route: 048
  11. TENORMIN [Concomitant]
     Dosage: 25 MG, 2X/DAY (50MG TABLET, TAKE 0.5 TABLET 2 TIMES DAILY)
     Route: 048
  12. NEXIUM [Concomitant]
     Dosage: 40 MG, 1X/DAY EVERY MORNING BEFORE BREAKFAST
     Route: 048

REACTIONS (5)
  - CONSTIPATION [None]
  - ANAEMIA [None]
  - GASTROOESOPHAGEAL REFLUX DISEASE [None]
  - DEPRESSION [None]
  - OSTEOARTHRITIS [None]
